FAERS Safety Report 4932983-5 (Version None)
Quarter: 2006Q1

REPORT INFORMATION
  Report Type: 
  Country: None (occurrence: None)
  Receive Date: 20060302
  Receipt Date: 20060302
  Transmission Date: 20060701
  Serious: Yes (Other)
  Sender: FDA-Public Use
  Company Number: None

PATIENT
  Sex: Female
  Weight: 73.9363 kg

DRUGS (2)
  1. DANTROLENE   50MG  QID [Suspect]
     Indication: MULTIPLE SCLEROSIS
     Dosage: 50MG QID  PO  (THERAPY DATES:  UNKNOWN - 1-2 DAYS ONLY)
     Route: 048
  2. DANTROLENE   50MG  QID [Suspect]
     Indication: MUSCLE SPASTICITY
     Dosage: 50MG QID  PO  (THERAPY DATES:  UNKNOWN - 1-2 DAYS ONLY)
     Route: 048

REACTIONS (4)
  - CONDITION AGGRAVATED [None]
  - MUSCLE SPASTICITY [None]
  - PAIN [None]
  - PHARMACEUTICAL PRODUCT COMPLAINT [None]
